FAERS Safety Report 23427852 (Version 1)
Quarter: 2024Q1

REPORT INFORMATION
  Report Type: Spontaneous
  Country: BR (occurrence: BR)
  Receive Date: 20240122
  Receipt Date: 20240122
  Transmission Date: 20240410
  Serious: Yes (Disabling, Other)
  Sender: FDA-Public Use
  Company Number: BR-CHEPLA-2024000867

PATIENT
  Sex: Female
  Weight: 66 kg

DRUGS (14)
  1. CLONAZEPAM [Suspect]
     Active Substance: CLONAZEPAM
     Indication: Panic disorder
     Dosage: DAILY (AT NIGHT), STRENGTH: 0.5 MG???DAILY DOSE: 1 DOSAGE FORM
     Route: 048
     Dates: start: 2013, end: 202111
  2. CLONAZEPAM [Suspect]
     Active Substance: CLONAZEPAM
     Indication: Labyrinthitis
     Dosage: DAILY (AT NIGHT), STRENGTH: 0.5 MG???DAILY DOSE: 1 DOSAGE FORM
     Route: 048
     Dates: start: 2013, end: 202111
  3. CLONAZEPAM [Suspect]
     Active Substance: CLONAZEPAM
     Indication: Panic disorder
     Dosage: 1/2 TABLET,STRENGTH: 0.5 MG
     Route: 048
     Dates: start: 202111
  4. CLONAZEPAM [Suspect]
     Active Substance: CLONAZEPAM
     Indication: Labyrinthitis
     Dosage: 1/2 TABLET,STRENGTH: 0.5 MG
     Route: 048
     Dates: start: 202111
  5. CLONAZEPAM [Suspect]
     Active Substance: CLONAZEPAM
     Indication: Panic disorder
     Dosage: 1/2 TABLET, DAILY (AT NIGHT)STRENGTH: 0.5 MG
     Route: 048
     Dates: start: 2023
  6. CLONAZEPAM [Suspect]
     Active Substance: CLONAZEPAM
     Indication: Labyrinthitis
     Dosage: 1/2 TABLET, DAILY (AT NIGHT)STRENGTH: 0.5 MG
     Route: 048
     Dates: start: 2023
  7. CLONAZEPAM [Suspect]
     Active Substance: CLONAZEPAM
     Indication: Panic disorder
     Dosage: STRENGTH: 0.25 MG?DAILY DOSE: 1 DOSAGE FORM
     Route: 048
     Dates: start: 20240110
  8. CLONAZEPAM [Suspect]
     Active Substance: CLONAZEPAM
     Indication: Labyrinthitis
     Dosage: STRENGTH: 0.25 MG?DAILY DOSE: 1 DOSAGE FORM
     Route: 048
     Dates: start: 20240110
  9. CLONAZEPAM [Suspect]
     Active Substance: CLONAZEPAM
     Indication: Panic disorder
     Dosage: DAILY (AT NIGHT), STRENGTH: 0.5 MG?DAILY DOSE: 1 DOSAGE FORM
     Route: 048
     Dates: end: 2023
  10. CLONAZEPAM [Suspect]
     Active Substance: CLONAZEPAM
     Indication: Labyrinthitis
     Dosage: DAILY (AT NIGHT), STRENGTH: 0.5 MG?DAILY DOSE: 1 DOSAGE FORM
     Route: 048
     Dates: end: 2023
  11. CLONAZEPAM [Suspect]
     Active Substance: CLONAZEPAM
     Indication: Panic disorder
     Dosage: STRENGTH: 0.5 MG?DAILY DOSE: 1 DOSAGE FORM
     Route: 048
     Dates: end: 20240110
  12. CLONAZEPAM [Suspect]
     Active Substance: CLONAZEPAM
     Indication: Labyrinthitis
     Dosage: STRENGTH: 0.5 MG?DAILY DOSE: 1 DOSAGE FORM
     Route: 048
     Dates: end: 20240110
  13. PHENOBARBITAL [Concomitant]
     Active Substance: PHENOBARBITAL
     Indication: Seizure
     Dosage: 1/2 TABLET DAILY
     Route: 048
     Dates: start: 2020
  14. CITALOPRAM [Concomitant]
     Active Substance: CITALOPRAM HYDROBROMIDE
     Indication: Depression
     Dosage: DAILY DOSE: 1 DOSAGE FORM
     Route: 048
     Dates: start: 2013, end: 2020

REACTIONS (20)
  - Neoplasm [Recovered/Resolved]
  - Visual impairment [Not Recovered/Not Resolved]
  - Malaise [Recovered/Resolved]
  - Malaise [Recovered/Resolved]
  - Malaise [Not Recovered/Not Resolved]
  - Dizziness [Recovered/Resolved]
  - Dizziness [Recovered/Resolved]
  - Dizziness [Not Recovered/Not Resolved]
  - Palpitations [Recovered/Resolved]
  - Palpitations [Recovered/Resolved]
  - Palpitations [Not Recovered/Not Resolved]
  - Insomnia [Recovered/Resolved]
  - Insomnia [Recovered/Resolved]
  - Insomnia [Not Recovered/Not Resolved]
  - Retching [Recovered/Resolved]
  - Retching [Recovered/Resolved]
  - Retching [Not Recovered/Not Resolved]
  - Off label use [Not Recovered/Not Resolved]
  - Product availability issue [Not Recovered/Not Resolved]
  - Weaning failure [Not Recovered/Not Resolved]

NARRATIVE: CASE EVENT DATE: 20130101
